FAERS Safety Report 8012848-5 (Version None)
Quarter: 2011Q4

REPORT INFORMATION
  Report Type: 
  Country: None (occurrence: None)
  Receive Date: 20111229
  Receipt Date: 20101203
  Transmission Date: 20120403
  Serious: Yes (Other)
  Sender: FDA-Public Use
  Company Number: AU-BRISTOL-MYERS SQUIBB COMPANY-16265340

PATIENT
  Age: 41 Year
  Sex: Female
  Weight: 64 kg

DRUGS (8)
  1. MOBIC [Concomitant]
  2. ORENCIA [Suspect]
     Indication: RHEUMATOID ARTHRITIS
     Dosage: RECEIVED ONE INF,INTERRUPTED ON AUG11,2011,RESTARTED ON NOV11
     Route: 042
     Dates: start: 20101201
  3. METHOTREXATE [Concomitant]
  4. ENDEP [Concomitant]
  5. FOLIC ACID [Concomitant]
  6. PREDNISONE TAB [Concomitant]
  7. AVAPRO [Concomitant]
  8. SULFASALAZINE [Concomitant]

REACTIONS (6)
  - PNEUMOTHORAX [None]
  - PNEUMONIA [None]
  - SQUAMOUS CELL CARCINOMA [None]
  - LOWER RESPIRATORY TRACT INFECTION [None]
  - WOUND INFECTION [None]
  - INFECTION [None]
